FAERS Safety Report 15366090 (Version 1)
Quarter: 2018Q3

REPORT INFORMATION
  Report Type: Spontaneous
  Country: US (occurrence: US)
  Receive Date: 20180910
  Receipt Date: 20180910
  Transmission Date: 20181010
  Serious: Yes (Death, Hospitalization, Other)
  Sender: FDA-Public Use
  Company Number: US-ELI_LILLY_AND_COMPANY-US201809001024

PATIENT
  Sex: Male

DRUGS (1)
  1. FORTEO [Suspect]
     Active Substance: TERIPARATIDE
     Indication: OSTEOPOROSIS
     Dosage: 20 UG, UNKNOWN
     Route: 058
     Dates: start: 20180807, end: 20180817

REACTIONS (6)
  - General physical health deterioration [Fatal]
  - Mobility decreased [Unknown]
  - Cardiac disorder [Fatal]
  - Plasma cell myeloma [Unknown]
  - Pain [Fatal]
  - Decubitus ulcer [Fatal]
